FAERS Safety Report 8475859-1 (Version None)
Quarter: 2012Q2

REPORT INFORMATION
  Report Type: 
  Country: None (occurrence: None)
  Receive Date: 20120621
  Receipt Date: 20120611
  Transmission Date: 20120825
  Serious: Yes (Hospitalization)
  Sender: FDA-Public Use
  Company Number: 2012SP031932

PATIENT
  Age: 60 Year
  Sex: Male

DRUGS (16)
  1. ALLOPURINOL [Concomitant]
  2. FORLAX [Concomitant]
  3. TEMAZEPAM [Concomitant]
  4. MIANSERINE [Concomitant]
  5. ACETAMINOPHEN [Concomitant]
  6. LYRICA [Concomitant]
  7. SYMBICORT [Concomitant]
  8. MORPHINE SULFATE [Concomitant]
  9. LASIX [Concomitant]
  10. BISOPROLOL FUMARATE [Concomitant]
  11. PREDNISOLONE [Concomitant]
  12. ORGARAN [Suspect]
     Indication: THROMBOCYTOPENIA
     Dosage: SC
     Route: 058
     Dates: start: 20110630, end: 20110708
  13. MORPHINE SULFATE [Concomitant]
  14. SPIRIVA [Concomitant]
  15. QUINAPRIL [Concomitant]
  16. OXAZEPAM [Concomitant]

REACTIONS (8)
  - NEUROENDOCRINE CARCINOMA [None]
  - RASH PRURITIC [None]
  - HEPARIN-INDUCED THROMBOCYTOPENIA [None]
  - TOXIC SKIN ERUPTION [None]
  - RASH MACULO-PAPULAR [None]
  - CELL DEATH [None]
  - ASPARTATE AMINOTRANSFERASE INCREASED [None]
  - LYMPHADENOPATHY MEDIASTINAL [None]
